FAERS Safety Report 25852596 (Version 1)
Quarter: 2025Q3

REPORT INFORMATION
  Report Type: Report from Study
  Country: BR (occurrence: BR)
  Receive Date: 20250926
  Receipt Date: 20250926
  Transmission Date: 20251020
  Serious: Yes (Hospitalization, Other)
  Sender: AMGEN
  Company Number: BR-AMGEN-BRASL2024247004

PATIENT
  Age: 66 Year
  Sex: Female

DRUGS (2)
  1. VECTIBIX [Suspect]
     Active Substance: PANITUMUMAB
     Indication: Colorectal cancer metastatic
     Route: 040
  2. VECTIBIX [Suspect]
     Active Substance: PANITUMUMAB
     Dosage: UNK, QMO
     Route: 040

REACTIONS (26)
  - Colorectal cancer metastatic [Not Recovered/Not Resolved]
  - Brain operation [Recovering/Resolving]
  - Back pain [Not Recovered/Not Resolved]
  - Syncope [Not Recovered/Not Resolved]
  - Bronchitis [Not Recovered/Not Resolved]
  - Pneumonia [Not Recovered/Not Resolved]
  - Neuropathy peripheral [Not Recovered/Not Resolved]
  - Sciatic nerve injury [Not Recovered/Not Resolved]
  - Nodule [Recovered/Resolved]
  - Procedural dizziness [Recovering/Resolving]
  - Skin lesion [Recovering/Resolving]
  - Pruritus [Recovering/Resolving]
  - Cough [Unknown]
  - Decreased appetite [Recovering/Resolving]
  - Influenza [Recovering/Resolving]
  - Wound [Recovered/Resolved]
  - Dysphonia [Not Recovered/Not Resolved]
  - Speech disorder [Not Recovered/Not Resolved]
  - Off label use [Unknown]
  - Muscular weakness [Unknown]
  - Weight decreased [Unknown]
  - Fall [Unknown]
  - Emotional disorder [Unknown]
  - Traumatic pain [Unknown]
  - Asthenia [Unknown]
  - Fatigue [Not Recovered/Not Resolved]

NARRATIVE: CASE EVENT DATE: 20240101
